FAERS Safety Report 10273347 (Version 1)
Quarter: 2014Q2

REPORT INFORMATION
  Report Type: Spontaneous
  Country: US (occurrence: None)
  Receive Date: 20140630
  Receipt Date: 20140630
  Transmission Date: 20141212
  Serious: Yes (Hospitalization)
  Sender: FDA-Public Use
  Company Number: None

PATIENT
  Age: 51 Year
  Sex: Male
  Weight: 109 kg

DRUGS (1)
  1. BUMETANIDE [Suspect]
     Indication: HYPERTENSION
     Dosage: MG  EVERY DAY  PO
     Route: 048
     Dates: start: 20131120, end: 20131203

REACTIONS (4)
  - Dizziness [None]
  - Hypotension [None]
  - Tachycardia [None]
  - Unevaluable event [None]
